FAERS Safety Report 9057628 (Version 2)
Quarter: 2013Q1

REPORT INFORMATION
  Report Type: Spontaneous
  Country: US (occurrence: US)
  Receive Date: 20130204
  Receipt Date: 20130304
  Transmission Date: 20140127
  Serious: No
  Sender: FDA-Public Use
  Company Number: US-PFIZER INC-2013040772

PATIENT
  Age: 87 Year
  Sex: Female

DRUGS (2)
  1. TORISEL [Suspect]
     Indication: RENAL CELL CARCINOMA
     Dosage: 15 MG, WEEKLY
     Route: 042
     Dates: start: 20120904
  2. DIPHENHYDRAMINE [Concomitant]
     Dosage: 25 MG, UNK
     Route: 042
     Dates: start: 20120904

REACTIONS (5)
  - Infusion site extravasation [Recovered/Resolved]
  - Erythema [Recovered/Resolved]
  - Pain [Recovered/Resolved]
  - Swelling [Recovered/Resolved]
  - Pruritus [Recovered/Resolved]
